FAERS Safety Report 11928252 (Version 3)
Quarter: 2016Q1

REPORT INFORMATION
  Report Type: Report from Study
  Country: US (occurrence: US)
  Receive Date: 20160119
  Receipt Date: 20160125
  Transmission Date: 20160526
  Serious: Yes (Hospitalization, Other)
  Sender: FDA-Public Use
  Company Number: US-BAYER-2015-470253

PATIENT
  Age: 47 Year
  Sex: Female
  Weight: 117.91 kg

DRUGS (9)
  1. REMODULIN [Suspect]
     Active Substance: TREPROSTINIL
     Dosage: UNK
  2. OPSUMIT [Concomitant]
     Active Substance: MACITENTAN
     Dosage: UNK
  3. ADEMPAS [Suspect]
     Active Substance: RIOCIGUAT
     Indication: PULMONARY ARTERIAL HYPERTENSION
     Dosage: 2 MG, TID
  4. ADEMPAS [Suspect]
     Active Substance: RIOCIGUAT
     Indication: PULMONARY ARTERIAL HYPERTENSION
     Dosage: 2.5 MG, TID
     Route: 048
  5. ADEMPAS [Suspect]
     Active Substance: RIOCIGUAT
     Indication: PULMONARY ARTERIAL HYPERTENSION
     Dosage: 1.5 MG, TID
     Route: 048
  6. DIGOXIN. [Concomitant]
     Active Substance: DIGOXIN
  7. ADEMPAS [Suspect]
     Active Substance: RIOCIGUAT
     Indication: PULMONARY ARTERIAL HYPERTENSION
     Dosage: 1 MG, TID
     Route: 048
  8. ADEMPAS [Suspect]
     Active Substance: RIOCIGUAT
     Indication: PULMONARY ARTERIAL HYPERTENSION
     Dosage: 0.5 MG, TID
     Route: 048
     Dates: start: 20151110
  9. SILDENAFIL. [Suspect]
     Active Substance: SILDENAFIL
     Dosage: UNK

REACTIONS (21)
  - Nausea [None]
  - Paraesthesia [Unknown]
  - Dizziness [None]
  - Chest pain [Unknown]
  - Gastric disorder [Unknown]
  - Angina pectoris [Unknown]
  - Feeling abnormal [None]
  - Catheter site pruritus [Unknown]
  - Vomiting [None]
  - Bacterial infection [Unknown]
  - Abdominal pain [None]
  - Headache [None]
  - Diarrhoea [None]
  - Fatigue [Unknown]
  - Peripheral swelling [None]
  - Abdominal discomfort [None]
  - Oedema peripheral [None]
  - Abdominal pain upper [None]
  - Irritable bowel syndrome [None]
  - Dyspnoea [Unknown]
  - Hypoaesthesia [Unknown]
